FAERS Safety Report 19173317 (Version 1)
Quarter: 2021Q2

REPORT INFORMATION
  Report Type: Spontaneous
  Country: US (occurrence: US)
  Receive Date: 20210423
  Receipt Date: 20210423
  Transmission Date: 20210717
  Serious: Yes (Other)
  Sender: FDA-Public Use
  Company Number: US-MACLEODS PHARMACEUTICALS US LTD-MAC2021030833

PATIENT

DRUGS (15)
  1. TRIAMCINOLONE ACETONIDE. [Suspect]
     Active Substance: TRIAMCINOLONE ACETONIDE
     Indication: EYE INFECTION TOXOPLASMAL
  2. CLARITHROMYCIN 500 MG [Suspect]
     Active Substance: CLARITHROMYCIN
     Indication: EYE INFECTION TOXOPLASMAL
  3. TRIAMCINOLONE ACETONIDE. [Suspect]
     Active Substance: TRIAMCINOLONE ACETONIDE
     Indication: INFECTION REACTIVATION
     Dosage: 1 DOSAGE FORM, SINGLE INJECTION IN THE RIGHT EYE
  4. CLINDAMYCIN 300 MG [Suspect]
     Active Substance: CLINDAMYCIN PHOSPHATE
     Indication: CHORIORETINITIS
  5. PREDNISOLONE. [Suspect]
     Active Substance: PREDNISOLONE
     Indication: INFECTION REACTIVATION
     Dosage: UNK, Q.H., 1 %
     Route: 061
  6. CLARITHROMYCIN 500 MG [Suspect]
     Active Substance: CLARITHROMYCIN
     Indication: CHORIORETINITIS
  7. CLARITHROMYCIN 500 MG [Suspect]
     Active Substance: CLARITHROMYCIN
     Indication: INFECTION REACTIVATION
     Dosage: 500 MILLIGRAM, BID (EVERY 12 HOURS)
     Route: 065
  8. TRIMETHOPRIM/SULFAMETHOXAZOLE [Suspect]
     Active Substance: SULFAMETHOXAZOLE\TRIMETHOPRIM
     Indication: EYE INFECTION TOXOPLASMAL
  9. CLINDAMYCIN 300 MG [Suspect]
     Active Substance: CLINDAMYCIN PHOSPHATE
     Indication: EYE INFECTION TOXOPLASMAL
  10. TRIMETHOPRIM/SULFAMETHOXAZOLE [Suspect]
     Active Substance: SULFAMETHOXAZOLE\TRIMETHOPRIM
     Indication: CHORIORETINITIS
  11. PREDNISOLONE. [Suspect]
     Active Substance: PREDNISOLONE
     Indication: EYE INFECTION TOXOPLASMAL
  12. TRIAMCINOLONE ACETONIDE. [Suspect]
     Active Substance: TRIAMCINOLONE ACETONIDE
     Indication: CHORIORETINITIS
  13. CLINDAMYCIN 300 MG [Suspect]
     Active Substance: CLINDAMYCIN PHOSPHATE
     Indication: INFECTION REACTIVATION
     Dosage: 300 MILLIGRAM, QID (EVERY 6 HOURS)
     Route: 065
  14. PREDNISOLONE. [Suspect]
     Active Substance: PREDNISOLONE
     Indication: CHORIORETINITIS
  15. TRIMETHOPRIM/SULFAMETHOXAZOLE [Suspect]
     Active Substance: SULFAMETHOXAZOLE\TRIMETHOPRIM
     Indication: INFECTION REACTIVATION
     Dosage: UNK, BID, DOUBLE STRENGTH (DS)
     Route: 048

REACTIONS (5)
  - Eye infection toxoplasmal [Recovering/Resolving]
  - Hypersensitivity [Unknown]
  - Choroiditis [Recovering/Resolving]
  - Condition aggravated [Recovering/Resolving]
  - Retinal neovascularisation [Recovering/Resolving]
